FAERS Safety Report 25494316 (Version 2)
Quarter: 2025Q3

REPORT INFORMATION
  Report Type: Spontaneous
  Country: CH (occurrence: CH)
  Receive Date: 20250630
  Receipt Date: 20250707
  Transmission Date: 20251021
  Serious: Yes (Other)
  Sender: MYLAN
  Company Number: CH-MYLANLABS-2025M1054536

PATIENT
  Sex: Male

DRUGS (21)
  1. VERAPAMIL [Suspect]
     Active Substance: VERAPAMIL HYDROCHLORIDE
     Indication: Cluster headache
  2. VERAPAMIL [Suspect]
     Active Substance: VERAPAMIL HYDROCHLORIDE
     Dosage: 720 MILLIGRAM, QD
  3. GABAPENTIN [Suspect]
     Active Substance: GABAPENTIN
     Indication: Cluster headache
  4. GABAPENTIN [Suspect]
     Active Substance: GABAPENTIN
     Dosage: 800 MILLIGRAM, QD
  5. LITHIUM [Suspect]
     Active Substance: LITHIUM
     Indication: Cluster headache
  6. LITHIUM [Suspect]
     Active Substance: LITHIUM
     Dosage: 1200 MILLIGRAM, QD
  7. TOPIRAMATE [Suspect]
     Active Substance: TOPIRAMATE
     Indication: Cluster headache
  8. TOPIRAMATE [Suspect]
     Active Substance: TOPIRAMATE
     Dosage: 100 MILLIGRAM, QD
  9. GALCANEZUMAB [Suspect]
     Active Substance: GALCANEZUMAB
     Indication: Cluster headache
     Dosage: 360 MILLIGRAM, MONTHLY
  10. MAGNESIUM [Suspect]
     Active Substance: MAGNESIUM
     Indication: Cluster headache
     Dosage: 300 MILLIGRAM, QD
  11. CANDESARTAN [Suspect]
     Active Substance: CANDESARTAN
     Indication: Cluster headache
     Dosage: 8 MILLIGRAM, QD
  12. MEMANTINE [Suspect]
     Active Substance: MEMANTINE
     Indication: Cluster headache
     Dosage: 10 MILLIGRAM, QD
  13. LAMOTRIGINE [Suspect]
     Active Substance: LAMOTRIGINE
     Indication: Cluster headache
  14. LAMOTRIGINE [Suspect]
     Active Substance: LAMOTRIGINE
     Dosage: 150 MILLIGRAM, QD
  15. LYSERGIDE [Concomitant]
     Active Substance: LYSERGIDE
     Indication: Cluster headache
  16. TRAZODONE [Concomitant]
     Active Substance: TRAZODONE HYDROCHLORIDE
     Indication: Attention deficit hyperactivity disorder
  17. LORAZEPAM [Concomitant]
     Active Substance: LORAZEPAM
     Indication: Attention deficit hyperactivity disorder
  18. SERTRALINE [Concomitant]
     Active Substance: SERTRALINE HYDROCHLORIDE
     Indication: Attention deficit hyperactivity disorder
  19. QUETIAPINE [Concomitant]
     Active Substance: QUETIAPINE
     Indication: Attention deficit hyperactivity disorder
  20. MIDAZOLAM [Concomitant]
     Active Substance: MIDAZOLAM
     Indication: Attention deficit hyperactivity disorder
  21. METHYLPHENIDATE [Concomitant]
     Active Substance: METHYLPHENIDATE
     Indication: Attention deficit hyperactivity disorder

REACTIONS (3)
  - Overdose [Unknown]
  - Drug ineffective for unapproved indication [Unknown]
  - Off label use [Unknown]
